FAERS Safety Report 20473925 (Version 2)
Quarter: 2022Q1

REPORT INFORMATION
  Report Type: Spontaneous
  Country: RU (occurrence: RU)
  Receive Date: 20220215
  Receipt Date: 20220317
  Transmission Date: 20220424
  Serious: Yes (Other)
  Sender: FDA-Public Use
  Company Number: RU-BAYER-2022A018020

PATIENT
  Age: 30 Year
  Sex: Female

DRUGS (1)
  1. DIENOGEST\ESTRADIOL VALERATE [Suspect]
     Active Substance: DIENOGEST\ESTRADIOL VALERATE
     Indication: Endometriosis
     Dosage: UNK
     Route: 048
     Dates: start: 202201

REACTIONS (5)
  - Mood swings [Recovered/Resolved]
  - Irritability [Recovered/Resolved]
  - Tearfulness [Recovered/Resolved]
  - Aggression [Recovered/Resolved]
  - Off label use [None]

NARRATIVE: CASE EVENT DATE: 20220101
